FAERS Safety Report 19665603 (Version 4)
Quarter: 2022Q1

REPORT INFORMATION
  Report Type: Spontaneous
  Country: JP (occurrence: JP)
  Receive Date: 20210806
  Receipt Date: 20220328
  Transmission Date: 20220423
  Serious: Yes (Death, Hospitalization)
  Sender: FDA-Public Use
  Company Number: JP-JNJFOC-A-CH2018-176643

PATIENT
  Age: 62 Year
  Sex: Female
  Weight: 39.7 kg

DRUGS (40)
  1. OPSUMIT [Suspect]
     Active Substance: MACITENTAN
     Indication: Pulmonary arterial hypertension
     Dosage: IN THE EVENING, 10 MG, QD
     Route: 048
     Dates: start: 20161007, end: 20190601
  2. UPTRAVI [Suspect]
     Active Substance: SELEXIPAG
     Indication: Pulmonary arterial hypertension
     Dosage: 0.4 MG, QD
     Route: 048
     Dates: start: 20180709, end: 201807
  3. ADCIRCA [Suspect]
     Active Substance: TADALAFIL
     Indication: Pulmonary arterial hypertension
     Dosage: 40 MG, QD
     Route: 048
     Dates: start: 201610
  4. SAMSCA [Concomitant]
     Active Substance: TOLVAPTAN
     Indication: Cardiac failure
     Dosage: 15 MG, QD
     Route: 048
     Dates: start: 20171216
  5. SAMSCA [Concomitant]
     Active Substance: TOLVAPTAN
     Indication: Right ventricular failure
     Route: 048
     Dates: start: 20181215
  6. SAMSCA [Concomitant]
     Active Substance: TOLVAPTAN
     Route: 048
     Dates: start: 20171215
  7. SAMSCA [Concomitant]
     Active Substance: TOLVAPTAN
     Route: 048
  8. FUROSEMIDE [Concomitant]
     Active Substance: FUROSEMIDE
     Indication: Cardiac failure
     Dosage: 80 MG, QD
     Route: 048
  9. FUROSEMIDE [Concomitant]
     Active Substance: FUROSEMIDE
     Indication: Right ventricular failure
     Dosage: P.R.N
     Route: 048
     Dates: start: 20170313
  10. SPIRONOLACTONE [Concomitant]
     Active Substance: SPIRONOLACTONE
     Indication: Right ventricular failure
     Dosage: 75 MG, QD
     Route: 048
  11. AZOSEMIDE [Concomitant]
     Active Substance: AZOSEMIDE
     Indication: Cardiac failure
     Dosage: 30 MG, QD
     Dates: start: 20180530
  12. AZOSEMIDE [Concomitant]
     Active Substance: AZOSEMIDE
     Indication: Right ventricular failure
  13. RABEPRAZOLE SODIUM [Concomitant]
     Active Substance: RABEPRAZOLE SODIUM
     Indication: Gastroenteritis
     Dosage: 10 MG, QD
     Route: 048
     Dates: start: 201610
  14. RABEPRAZOLE SODIUM [Concomitant]
     Active Substance: RABEPRAZOLE SODIUM
     Indication: Oesophagitis
     Route: 048
  15. FEBUXOSTAT [Concomitant]
     Active Substance: FEBUXOSTAT
     Indication: Hyperuricaemia
     Dosage: 10 MG, QD
     Route: 048
  16. MAGNESIUM OXIDE [Concomitant]
     Active Substance: MAGNESIUM OXIDE
     Indication: Constipation
     Dosage: 1500 MG, QD
     Route: 048
  17. NESINA [Concomitant]
     Active Substance: ALOGLIPTIN BENZOATE
     Indication: Diabetes mellitus
     Dosage: 25 MG, QD
     Route: 048
  18. NESINA [Concomitant]
     Active Substance: ALOGLIPTIN BENZOATE
     Dosage: 25 MG, QD
     Route: 048
  19. NESINA [Concomitant]
     Active Substance: ALOGLIPTIN BENZOATE
     Route: 048
  20. AMITIZA [Concomitant]
     Active Substance: LUBIPROSTONE
     Indication: Constipation
     Route: 048
  21. AMITIZA [Concomitant]
     Active Substance: LUBIPROSTONE
     Dosage: 24 UG, QD
     Route: 048
  22. AMITIZA [Concomitant]
     Active Substance: LUBIPROSTONE
     Dosage: 24 UG, QD
     Route: 048
  23. RIBOFLAVIN [Concomitant]
     Active Substance: RIBOFLAVIN
     Indication: Vitamin B2 deficiency
     Dosage: 20 MG, QD
     Route: 048
     Dates: start: 201610
  24. RIBOFLAVIN [Concomitant]
     Active Substance: RIBOFLAVIN
     Indication: Hypercholesterolaemia
  25. SENNOSIDES [Concomitant]
     Active Substance: SENNOSIDES
     Indication: Constipation
     Dosage: 48 MG, QD
     Route: 048
  26. REFLEX [Concomitant]
     Active Substance: MIRTAZAPINE
     Indication: Anxiety disorder
     Route: 048
  27. REFLEX [Concomitant]
     Active Substance: MIRTAZAPINE
     Indication: Depression
  28. FLUNITRAZEPAN [Concomitant]
     Indication: Insomnia
     Dosage: 1 MG, QD
     Route: 048
  29. SODIUM PICOSULFATE [Concomitant]
     Active Substance: SODIUM PICOSULFATE
     Indication: Constipation
     Route: 048
     Dates: start: 20170116
  30. SODIUM PICOSULFATE [Concomitant]
     Active Substance: SODIUM PICOSULFATE
     Route: 048
  31. METOCLOPRAMIDE [Concomitant]
     Active Substance: METOCLOPRAMIDE
     Indication: Vomiting
     Dosage: PRN
     Route: 048
     Dates: start: 20170313
  32. METOCLOPRAMIDE [Concomitant]
     Active Substance: METOCLOPRAMIDE
     Indication: Nausea
     Dosage: 5 MG, QD
     Route: 048
  33. METOCLOPRAMIDE [Concomitant]
     Active Substance: METOCLOPRAMIDE
     Dosage: DOSE UNKNOWN
     Route: 048
     Dates: start: 20190408
  34. LACTULOSE [Concomitant]
     Active Substance: LACTULOSE
     Indication: Constipation
     Route: 048
  35. SODIUM BICARBONATE\SODIUM PHOSPHATE, MONOBASIC [Concomitant]
     Active Substance: SODIUM BICARBONATE\SODIUM PHOSPHATE, MONOBASIC
     Indication: Constipation
     Route: 065
  36. KETOPROFEN [Concomitant]
     Active Substance: KETOPROFEN
     Dosage: DOSE UNKNOWN
     Route: 048
  37. OXYGEN [Concomitant]
     Active Substance: OXYGEN
     Dosage: DOSE UNKNOWN
     Route: 055
  38. TRICHLORMETHIAZIDE [Concomitant]
     Active Substance: TRICHLORMETHIAZIDE
     Route: 048
     Dates: start: 20181015
  39. GOREISAN [ALISMA ORIENTALE TUBER;ATRACTYLODES SPP. RHIZOME;CINNAMOMUM [Concomitant]
     Indication: Oedema
     Route: 048
     Dates: start: 20190117
  40. MORPHINE HYDROCHLORIDE [Concomitant]
     Active Substance: MORPHINE HYDROCHLORIDE
     Route: 065
     Dates: start: 20190530

REACTIONS (6)
  - Pulmonary hypertension [Fatal]
  - Blood pressure decreased [Fatal]
  - Condition aggravated [Fatal]
  - Brain natriuretic peptide increased [Recovered/Resolved]
  - Gastrooesophageal reflux disease [Recovered/Resolved]
  - Vomiting [Recovered/Resolved]

NARRATIVE: CASE EVENT DATE: 20180701
